FAERS Safety Report 18109885 (Version 2)
Quarter: 2020Q3

REPORT INFORMATION
  Report Type: Spontaneous
  Country: PH (occurrence: PH)
  Receive Date: 20200804
  Receipt Date: 20200811
  Transmission Date: 20201103
  Serious: Yes (Death, Other)
  Sender: FDA-Public Use
  Company Number: PH-B.I. PHARMACEUTICALS,INC./RIDGEFIELD-2020-BI-038132

PATIENT
  Age: 74 Year
  Sex: Male

DRUGS (1)
  1. PRADAXA [Suspect]
     Active Substance: DABIGATRAN ETEXILATE MESYLATE
     Indication: PRODUCT USED FOR UNKNOWN INDICATION
     Route: 065

REACTIONS (12)
  - Haemorrhage [Recovered/Resolved]
  - Pneumonia [Unknown]
  - Haemoptysis [Unknown]
  - Coma [Unknown]
  - Activated partial thromboplastin time prolonged [Unknown]
  - Embolism [Unknown]
  - Death [Fatal]
  - Thrombosis [Unknown]
  - Blood pressure systolic abnormal [Unknown]
  - SARS-CoV-2 test positive [Unknown]
  - Haemoglobin abnormal [Unknown]
  - Haematemesis [Unknown]
